FAERS Safety Report 7979956-6 (Version None)
Quarter: 2011Q4

REPORT INFORMATION
  Report Type: 
  Country: None (occurrence: None)
  Receive Date: 20111214
  Receipt Date: 20111130
  Transmission Date: 20120403
  Serious: Yes (Death)
  Sender: FDA-Public Use
  Company Number: US-ROCHE-1017714

PATIENT
  Sex: Female

DRUGS (7)
  1. TORADOL [Suspect]
     Indication: FALL
  2. VICOPROFEN [Suspect]
     Indication: CONFUSIONAL STATE
  3. TORADOL [Suspect]
     Indication: PELVIC PAIN
  4. COUMADIN [Concomitant]
     Route: 065
  5. TORADOL [Suspect]
     Indication: CONFUSIONAL STATE
  6. VICOPROFEN [Suspect]
     Indication: PELVIC PAIN
     Route: 048
     Dates: start: 20110626
  7. VICOPROFEN [Suspect]
     Indication: FALL

REACTIONS (2)
  - HAEMATEMESIS [None]
  - ABDOMINAL DISTENSION [None]
